FAERS Safety Report 13892600 (Version 1)
Quarter: 2017Q3

REPORT INFORMATION
  Report Type: Spontaneous
  Country: US (occurrence: US)
  Receive Date: 20170822
  Receipt Date: 20170822
  Transmission Date: 20171127
  Serious: No
  Sender: FDA-Public Use
  Company Number: US-ROCHE-708095

PATIENT
  Age: 47 Year
  Sex: Female
  Weight: 74.8 kg

DRUGS (22)
  1. EFFEXOR XR [Concomitant]
     Active Substance: VENLAFAXINE HYDROCHLORIDE
     Dosage: FREQUENCY REPORTED AS HS (AT NIGHT)
     Route: 065
  2. ORENCIA [Concomitant]
     Active Substance: ABATACEPT
     Dosage: DISCONTINUED ON 08 APRIL 2009.
     Route: 042
  3. REMICADE [Concomitant]
     Active Substance: INFLIXIMAB
     Dosage: DISCONTINUED ON 3 MARCH 2010.
     Route: 042
  4. NEURONTIN [Concomitant]
     Active Substance: GABAPENTIN
     Dosage: FREQUENCY REPORTED AS HS (AT NIGHT)
     Route: 065
  5. DURAGESIC [Concomitant]
     Active Substance: FENTANYL
     Route: 065
  6. DURAGESIC [Concomitant]
     Active Substance: FENTANYL
     Route: 065
  7. REMICADE [Concomitant]
     Active Substance: INFLIXIMAB
     Dosage: DISCONTINUED ON 29 MARCH 2010
     Route: 042
  8. ACTEMRA [Suspect]
     Active Substance: TOCILIZUMAB
     Indication: RHEUMATOID ARTHRITIS
     Dosage: FORM: INFUSION
     Route: 042
  9. ACTEMRA [Suspect]
     Active Substance: TOCILIZUMAB
     Route: 042
  10. RESTORIL [Concomitant]
     Active Substance: TEMAZEPAM
     Dosage: FREQUENCY REPORTED AS HS (AT NIGHT)
     Route: 065
  11. ORENCIA [Concomitant]
     Active Substance: ABATACEPT
     Dosage: FREQUENCY REPORTED AS 4 WEEKS
     Route: 042
  12. DURAGESIC [Concomitant]
     Active Substance: FENTANYL
     Route: 065
  13. FAMVIR [Concomitant]
     Active Substance: FAMCICLOVIR
     Route: 065
  14. ZEGERID [Concomitant]
     Active Substance: OMEPRAZOLE\SODIUM BICARBONATE
     Route: 065
  15. METHOTREXATE. [Concomitant]
     Active Substance: METHOTREXATE
     Indication: RHEUMATOID ARTHRITIS
     Route: 058
  16. CELEBREX [Concomitant]
     Active Substance: CELECOXIB
     Indication: RHEUMATOID ARTHRITIS
     Route: 048
  17. TRAZODONE [Concomitant]
     Active Substance: TRAZODONE HYDROCHLORIDE
     Dosage: FREQUENCY REPORTED AS HS (AT NIGHT)
     Route: 065
  18. TOPAMAX [Concomitant]
     Active Substance: TOPIRAMATE
     Dosage: FREQUENCY REPORTED AS HS (AT NIGHT)
     Route: 065
  19. LORTAB [Concomitant]
     Active Substance: ACETAMINOPHEN\HYDROCODONE BITARTRATE
     Route: 065
  20. DRISDOL [Concomitant]
     Active Substance: ERGOCALCIFEROL
     Dosage: DOSE 50000 PER ORAL
     Route: 048
  21. PRISTIQ EXTENDED-RELEASE [Concomitant]
     Active Substance: DESVENLAFAXINE SUCCINATE
     Dosage: FREQUENCY REPORTED AS HS (AT NIGHT)
     Route: 065
  22. PREDNISONE. [Concomitant]
     Active Substance: PREDNISONE
     Indication: RHEUMATOID ARTHRITIS
     Dosage: DRUG REPORTED AS PREGNAZONE
     Route: 048

REACTIONS (5)
  - Diarrhoea [Recovered/Resolved]
  - Nausea [Recovered/Resolved]
  - Somnolence [Unknown]
  - Abdominal pain [Unknown]
  - Vomiting [Recovered/Resolved]

NARRATIVE: CASE EVENT DATE: 20100412
